FAERS Safety Report 9294293 (Version 1)
Quarter: 2013Q1

REPORT INFORMATION
  Report Type: Spontaneous
  Country: US (occurrence: None)
  Receive Date: 20121227
  Receipt Date: 20121227
  Transmission Date: 20140127
  Serious: Yes (Other)
  Sender: FDA-Public Use
  Company Number: PHEH2012US016479

PATIENT
  Sex: Female

DRUGS (2)
  1. MYFORTIC [Suspect]
     Indication: LIVER TRANSPLANT
     Route: 048
  2. NEORAL (CICLOSPORIN) [Concomitant]

REACTIONS (2)
  - Ovarian cyst [None]
  - Uterine leiomyoma [None]
